FAERS Safety Report 8181327-7 (Version None)
Quarter: 2012Q1

REPORT INFORMATION
  Report Type: 
  Country: None (occurrence: None)
  Receive Date: 20120302
  Receipt Date: 20120227
  Transmission Date: 20120608
  Serious: No
  Sender: FDA-Public Use
  Company Number: US-PFIZER INC-2012051282

PATIENT
  Age: 29 Month
  Sex: Male

DRUGS (6)
  1. VORICONAZOLE [Suspect]
     Indication: ASPERGILLOSIS
     Dosage: 8.3 (MG/KG) Q12 HOURS
     Route: 042
  2. PHENOBARBITAL TAB [Interacting]
  3. METHADONE [Concomitant]
  4. VORICONAZOLE [Interacting]
     Dosage: 9.5 (MG/KG) Q12 HOURS
     Route: 042
  5. VORICONAZOLE [Interacting]
     Dosage: 9.5 (MG/KG) Q12 HOURS
     Route: 048
  6. WARFARIN [Concomitant]

REACTIONS (1)
  - DRUG INTERACTION [None]
